FAERS Safety Report 7505755-5 (Version None)
Quarter: 2011Q2

REPORT INFORMATION
  Report Type: 
  Country: None (occurrence: None)
  Receive Date: 20110526
  Receipt Date: 20110517
  Transmission Date: 20111010
  Serious: Yes (Hospitalization, Other)
  Sender: FDA-Public Use
  Company Number: US-ASTRAZENECA-2011SE29846

PATIENT
  Age: 40 Year
  Sex: Female
  Weight: 46.7 kg

DRUGS (10)
  1. INTEGRA [Concomitant]
     Indication: MINERAL SUPPLEMENTATION
  2. ALLEGRA [Concomitant]
     Indication: MULTIPLE ALLERGIES
  3. SYMBICORT [Concomitant]
     Indication: CHRONIC OBSTRUCTIVE PULMONARY DISEASE
     Dosage: 160/4.5 PRN
     Route: 055
  4. HYDROCODONE BITARTRATE [Concomitant]
     Indication: BACK PAIN
  5. PAXIL [Concomitant]
     Indication: DEPRESSION
  6. HYDROCODONE BITARTRATE [Concomitant]
     Indication: PAIN IN EXTREMITY
  7. SEROQUEL XR [Suspect]
     Route: 048
  8. XANEX [Concomitant]
     Indication: ANXIETY
  9. NEXIUM [Concomitant]
     Route: 048
  10. LUNESTA [Concomitant]
     Indication: SLEEP DISORDER

REACTIONS (2)
  - GASTRIC ULCER SURGERY [None]
  - GASTRIC ULCER [None]
